FAERS Safety Report 17039119 (Version 3)
Quarter: 2020Q3

REPORT INFORMATION
  Report Type: Spontaneous
  Country: US (occurrence: US)
  Receive Date: 20191115
  Receipt Date: 20200724
  Transmission Date: 20201102
  Serious: Yes (Other)
  Sender: FDA-Public Use
  Company Number: US-SA-2019SA313494

PATIENT

DRUGS (1)
  1. DUPIXENT [Suspect]
     Active Substance: DUPILUMAB
     Indication: ASTHMA
     Dosage: 300 MG, QOW
     Route: 058
     Dates: start: 20190620

REACTIONS (7)
  - Skin discolouration [Recovering/Resolving]
  - Fall [Unknown]
  - Musculoskeletal disorder [Unknown]
  - Thrombosis [Unknown]
  - Pain [Unknown]
  - Gait inability [Unknown]
  - Product use issue [Unknown]

NARRATIVE: CASE EVENT DATE: 2019
